FAERS Safety Report 21254939 (Version 5)
Quarter: 2024Q2

REPORT INFORMATION
  Report Type: Spontaneous
  Country: US (occurrence: US)
  Receive Date: 20220825
  Receipt Date: 20240426
  Transmission Date: 20240716
  Serious: Yes (Hospitalization)
  Sender: FDA-Public Use
  Company Number: US-THERATECHNOLOGIES INC.-2022-THE-IBA-000242

PATIENT

DRUGS (5)
  1. TROGARZO [Suspect]
     Active Substance: IBALIZUMAB-UIYK
     Indication: HIV infection
     Dosage: 2000 MG, LOADING DOSE
     Route: 042
     Dates: start: 202205, end: 202205
  2. TROGARZO [Suspect]
     Active Substance: IBALIZUMAB-UIYK
     Dosage: 800 MG (MAINTENANCE DOSE), EVERY 2 WEEKS (EVERY 14 DAYS)
     Route: 042
     Dates: start: 202205
  3. LENACAPAVIR [Concomitant]
     Active Substance: LENACAPAVIR
     Indication: HIV infection
     Dosage: 2 TABLETS BY MOUTH 1 TIME ON DAY 1 AND DAY 2
     Route: 048
  4. LENACAPAVIR [Concomitant]
     Active Substance: LENACAPAVIR
     Dosage: 927 MG (2*1.5ML),AFTER DAY 1 BEGIN INJECTABLE DOSE, THEN EVERY 26 WEEKS AS DIRECTED.
     Route: 058
  5. SODIUM CHLORIDE [Concomitant]
     Active Substance: SODIUM CHLORIDE
     Indication: Product used for unknown indication
     Dosage: 5 ML
     Route: 065

REACTIONS (5)
  - Hospitalisation [Unknown]
  - Hospitalisation [Unknown]
  - Hospitalisation [Unknown]
  - Hospitalisation [Unknown]
  - Diarrhoea [Not Recovered/Not Resolved]

NARRATIVE: CASE EVENT DATE: 20240301
